FAERS Safety Report 10265524 (Version 1)
Quarter: 2014Q2

REPORT INFORMATION
  Report Type: Spontaneous
  Country: DE (occurrence: DE)
  Receive Date: 20140627
  Receipt Date: 20140627
  Transmission Date: 20141212
  Serious: Yes (Hospitalization)
  Sender: FDA-Public Use
  Company Number: DE-JNJFOC-20140614896

PATIENT
  Age: 82 Year
  Sex: Male
  Weight: 76 kg

DRUGS (6)
  1. XARELTO [Suspect]
     Indication: PRODUCT USED FOR UNKNOWN INDICATION
     Route: 048
     Dates: start: 20120908, end: 20140109
  2. BETA-ACETYLDIGOXIN [Concomitant]
     Indication: CARDIAC FAILURE
     Route: 048
  3. MIRTAZAPIN [Concomitant]
     Indication: DEPRESSION
     Route: 048
  4. BISOPROLOL [Concomitant]
     Indication: TACHYCARDIA
     Dosage: 1.5-0-0.5
     Route: 048
     Dates: start: 20120908
  5. JANUMET [Concomitant]
     Indication: TYPE 2 DIABETES MELLITUS
     Dosage: 1-0-1
     Route: 048
     Dates: start: 2012
  6. RAMIPRIL [Concomitant]
     Indication: HYPERTENSION
     Route: 048

REACTIONS (5)
  - Cardiac failure [Recovering/Resolving]
  - Haemorrhagic anaemia [Recovering/Resolving]
  - Tachycardia [Recovering/Resolving]
  - Headache [Recovering/Resolving]
  - Asthenia [Recovering/Resolving]
